FAERS Safety Report 23554709 (Version 1)
Quarter: 2024Q1

REPORT INFORMATION
  Report Type: Spontaneous
  Country: US (occurrence: None)
  Receive Date: 20240222
  Receipt Date: 20240222
  Transmission Date: 20240409
  Serious: Yes (Disabling)
  Sender: FDA-Public Use
  Company Number: None

PATIENT
  Age: 55 Year
  Sex: Male
  Weight: 106.65 kg

DRUGS (1)
  1. LEVOFLOXACIN [Suspect]
     Active Substance: LEVOFLOXACIN
     Indication: Prostatitis
     Dosage: OTHER QUANTITY : 1 TABLET(S);?FREQUENCY : DAILY;?
     Route: 048
     Dates: start: 20240218, end: 20240219

REACTIONS (8)
  - Blindness [None]
  - Vision blurred [None]
  - Arthralgia [None]
  - Pain in extremity [None]
  - Arthralgia [None]
  - Gait inability [None]
  - Tendon disorder [None]
  - Impaired work ability [None]

NARRATIVE: CASE EVENT DATE: 20240220
